FAERS Safety Report 4791154-6 (Version None)
Quarter: 2005Q4

REPORT INFORMATION
  Report Type: 
  Country: None (occurrence: None)
  Receive Date: 20051005
  Receipt Date: 20050922
  Transmission Date: 20060501
  Serious: Yes (Hospitalization, Other)
  Sender: FDA-Public Use
  Company Number: HQWYE606822SEP05

PATIENT
  Age: 72 Year
  Sex: Male

DRUGS (6)
  1. CORDARONE [Suspect]
     Indication: ATRIAL FLUTTER
     Dosage: 900 MG 1X PER 1 DAY INTRAVENOUS DRIP
     Route: 041
     Dates: start: 20050818, end: 20050819
  2. CORDARONE [Suspect]
     Indication: ATRIAL FLUTTER
     Dosage: 400 MG 1X PER 1 DAY ORAL
     Route: 048
     Dates: start: 20050820, end: 20050822
  3. HEPARIN SODIUM [Concomitant]
  4. CONVERTEN (ENALAPRIL MALEATE) [Concomitant]
  5. NORVASC [Concomitant]
  6. SINVACOR (SIMVASTATIN) [Concomitant]

REACTIONS (3)
  - DIALYSIS [None]
  - HEPATIC FAILURE [None]
  - RENAL TUBULAR NECROSIS [None]
